FAERS Safety Report 8269090-2 (Version None)
Quarter: 2012Q1

REPORT INFORMATION
  Report Type: 
  Country: None (occurrence: None)
  Receive Date: 20120327
  Receipt Date: 20091229
  Transmission Date: 20120608
  Serious: Yes (Other)
  Sender: FDA-Public Use
  Company Number: PHEH2009US13314

PATIENT
  Age: 89 Year
  Sex: Male

DRUGS (5)
  1. OSCAL (CALCIUM CARBONATE) [Concomitant]
  2. LYRICA [Concomitant]
  3. GLEEVEC [Suspect]
     Indication: CHRONIC MYELOID LEUKAEMIA
     Dosage: 400 MG, BID, ORAL, 200 MG, QD
     Route: 048
     Dates: start: 20090319, end: 20090415
  4. GLEEVEC [Suspect]
     Indication: CHRONIC MYELOID LEUKAEMIA
     Dosage: 400 MG, BID, ORAL, 200 MG, QD
     Route: 048
     Dates: start: 20090428, end: 20090601
  5. SINEMET [Concomitant]

REACTIONS (15)
  - WHITE BLOOD CELL COUNT DECREASED [None]
  - MYALGIA [None]
  - HAEMOGLOBIN DECREASED [None]
  - THROMBOCYTOPENIA [None]
  - HEPATIC ENZYME ABNORMAL [None]
  - HEADACHE [None]
  - DYSPNOEA [None]
  - FLUID RETENTION [None]
  - ABDOMINAL DISTENSION [None]
  - OEDEMA PERIPHERAL [None]
  - FATIGUE [None]
  - ARTHRALGIA [None]
  - ANXIETY [None]
  - PLATELET COUNT DECREASED [None]
  - GASTROOESOPHAGEAL REFLUX DISEASE [None]
